FAERS Safety Report 6614572-X (Version None)
Quarter: 2010Q1

REPORT INFORMATION
  Report Type: 
  Country: None (occurrence: None)
  Receive Date: 20100304
  Receipt Date: 20100304
  Transmission Date: 20100710
  Serious: Yes (Hospitalization)
  Sender: FDA-Public Use
  Company Number: None

PATIENT
  Sex: Female
  Weight: 77.1115 kg

DRUGS (1)
  1. LAMOTRIGINE [Suspect]
     Indication: BIPOLAR DISORDER
     Dosage: 1 TABLETS ONCE A DAY PO
     Route: 048
     Dates: start: 20091208, end: 20091217

REACTIONS (10)
  - ABASIA [None]
  - AGITATION [None]
  - ANXIETY [None]
  - APHASIA [None]
  - CONVULSION [None]
  - DISORIENTATION [None]
  - HEADACHE [None]
  - INSOMNIA [None]
  - SUDDEN ONSET OF SLEEP [None]
  - TREMOR [None]
